FAERS Safety Report 9223489 (Version 1)
Quarter: 2013Q2

REPORT INFORMATION
  Report Type: Spontaneous
  Country: GB (occurrence: GB)
  Receive Date: 20130410
  Receipt Date: 20130410
  Transmission Date: 20140414
  Serious: Yes (Disabling, Other)
  Sender: FDA-Public Use
  Company Number: GB-BAYER-2013-043035

PATIENT
  Age: 43 Year
  Sex: Female

DRUGS (1)
  1. MIRENA [Suspect]
     Indication: MENORRHAGIA
     Dosage: 20 MCG/24HR, CONT
     Route: 015
     Dates: start: 20121203, end: 20130225

REACTIONS (4)
  - Oedema peripheral [Recovering/Resolving]
  - Libido decreased [Recovering/Resolving]
  - Mood swings [Recovering/Resolving]
  - Paraesthesia [Recovering/Resolving]
